FAERS Safety Report 6518829-2 (Version None)
Quarter: 2009Q4

REPORT INFORMATION
  Report Type: 
  Country: None (occurrence: None)
  Receive Date: 20091228
  Receipt Date: 20091216
  Transmission Date: 20100525
  Serious: Yes (Hospitalization, Other)
  Sender: FDA-Public Use
  Company Number: JP-JNJFOC-20091206715

PATIENT
  Age: 7 Decade
  Sex: Female

DRUGS (4)
  1. CRAVIT [Suspect]
     Indication: PHARYNGITIS
     Route: 048
  2. LOXOPROFEN [Suspect]
     Indication: DRUG USE FOR UNKNOWN INDICATION
     Route: 065
  3. MEDICON [Suspect]
     Indication: DRUG USE FOR UNKNOWN INDICATION
     Route: 065
  4. STRONG NEO-MINOPHAGEN C [Suspect]
     Indication: URTICARIA
     Route: 065

REACTIONS (2)
  - SHOCK [None]
  - URTICARIA [None]
